FAERS Safety Report 5101977-1 (Version None)
Quarter: 2006Q3

REPORT INFORMATION
  Report Type: 
  Country: None (occurrence: None)
  Receive Date: 20060907
  Receipt Date: 20060906
  Transmission Date: 20061208
  Serious: Yes (Death)
  Sender: FDA-Public Use
  Company Number: 225743

PATIENT
  Age: 60 Year
  Sex: Male
  Weight: 90.7 kg

DRUGS (8)
  1. AVASTIN [Suspect]
     Indication: COLON CANCER
     Dosage: 5 INTRAVENOUS
     Route: 042
     Dates: start: 20060328
  2. CAPECITABINE (CAPECITABINE) [Suspect]
     Indication: COLON CANCER
     Dosage: 42000 QD, ORAL
     Route: 048
     Dates: start: 20060328
  3. OXALIPLATIN [Suspect]
     Indication: COLON CANCER
     Dosage: 85 INTRAVENOUS
     Route: 042
     Dates: start: 20060328
  4. VERAPAMIL [Concomitant]
  5. ZOCOR [Concomitant]
  6. ATIVAN [Concomitant]
  7. FLOMAX [Concomitant]
  8. HALDOL [Concomitant]

REACTIONS (7)
  - ABDOMINAL DISTENSION [None]
  - ABDOMINAL PAIN [None]
  - BLOOD MAGNESIUM DECREASED [None]
  - BLOOD POTASSIUM DECREASED [None]
  - DIARRHOEA [None]
  - ERYTHEMA [None]
  - PAIN IN EXTREMITY [None]
